FAERS Safety Report 16944593 (Version 1)
Quarter: 2019Q4

REPORT INFORMATION
  Report Type: Spontaneous
  Country: US (occurrence: US)
  Receive Date: 20191022
  Receipt Date: 20191022
  Transmission Date: 20200122
  Serious: Yes (Hospitalization, Other)
  Sender: FDA-Public Use
  Company Number: US-009507513-1910USA012388

PATIENT
  Age: 88 Year
  Sex: Male

DRUGS (3)
  1. KEYTRUDA [Suspect]
     Active Substance: PEMBROLIZUMAB
     Indication: METASTASES TO PERIPHERAL NERVOUS SYSTEM
  2. KEYTRUDA [Suspect]
     Active Substance: PEMBROLIZUMAB
     Indication: METASTATIC MALIGNANT MELANOMA
     Dosage: MG/KG EVERY THREE WEEKS
  3. PREDNISONE. [Concomitant]
     Active Substance: PREDNISONE
     Indication: SECONDARY ADRENOCORTICAL INSUFFICIENCY
     Dosage: DAILY BY ENDOCRINOLOGY

REACTIONS (1)
  - Behcet^s syndrome [Recovered/Resolved]
